FAERS Safety Report 12539283 (Version 1)
Quarter: 2016Q3

REPORT INFORMATION
  Report Type: Spontaneous
  Country: US (occurrence: None)
  Receive Date: 20160707
  Receipt Date: 20160707
  Transmission Date: 20161109
  Serious: Yes (Hospitalization)
  Sender: FDA-Public Use
  Company Number: None

PATIENT
  Age: 39 Year
  Sex: Male
  Weight: 99.8 kg

DRUGS (1)
  1. ORBACTIV [Suspect]
     Active Substance: ORITAVANCIN
     Indication: MUSCLE ABSCESS
     Dosage: 1200 MG ONCE IVPB?
     Route: 042
     Dates: start: 20160312

REACTIONS (5)
  - Neck pain [None]
  - Chest pain [None]
  - Chills [None]
  - Dyspnoea [None]
  - Oxygen saturation decreased [None]

NARRATIVE: CASE EVENT DATE: 20160326
